FAERS Safety Report 12180667 (Version 3)
Quarter: 2016Q2

REPORT INFORMATION
  Report Type: Report from Study
  Country: CA (occurrence: CA)
  Receive Date: 20160315
  Receipt Date: 20160516
  Transmission Date: 20160815
  Serious: Yes (Hospitalization)
  Sender: FDA-Public Use
  Company Number: CA-BEH-2016060039

PATIENT
  Age: 70 Year
  Sex: Female

DRUGS (15)
  1. PREDNISOLONE. [Concomitant]
     Active Substance: PREDNISOLONE
     Dosage: SLOWLY DECREASING DOSE
  2. PANTOLOC [Concomitant]
     Active Substance: PANTOPRAZOLE SODIUM
  3. FOLIC ACID. [Concomitant]
     Active Substance: FOLIC ACID
  4. PULMICORT TURBUHALER [Concomitant]
     Active Substance: BUDESONIDE
  5. COUMADIN [Concomitant]
     Active Substance: WARFARIN SODIUM
  6. HIZENTRA [Suspect]
     Active Substance: HUMAN IMMUNOGLOBULIN G
     Dosage: PUMP METHOD
     Route: 058
     Dates: start: 20160424
  7. OXYCODONE [Concomitant]
     Active Substance: OXYCODONE
  8. HIZENTRA [Suspect]
     Active Substance: HUMAN IMMUNOGLOBULIN G
     Indication: AUTOIMMUNE HAEMOLYTIC ANAEMIA
     Dosage: PUMP METHOD
     Route: 058
     Dates: start: 20160115, end: 20160303
  9. CARBO-CAL [Concomitant]
  10. RITUXAN [Concomitant]
     Active Substance: RITUXIMAB
  11. HIZENTRA [Suspect]
     Active Substance: HUMAN IMMUNOGLOBULIN G
     Indication: PRIMARY IMMUNODEFICIENCY SYNDROME
  12. GLYBURIDE. [Concomitant]
     Active Substance: GLYBURIDE
  13. SEPTRA DS [Concomitant]
     Active Substance: SULFAMETHOXAZOLE\TRIMETHOPRIM
  14. LYRICA [Concomitant]
     Active Substance: PREGABALIN
  15. CRESTOR [Concomitant]
     Active Substance: ROSUVASTATIN CALCIUM

REACTIONS (2)
  - Anaemia [Not Recovered/Not Resolved]
  - Haemoglobin decreased [Not Recovered/Not Resolved]

NARRATIVE: CASE EVENT DATE: 20160302
